FAERS Safety Report 6023864-7 (Version None)
Quarter: 2008Q4

REPORT INFORMATION
  Report Type: 
  Country: None (occurrence: None)
  Receive Date: 20081230
  Receipt Date: 20081223
  Transmission Date: 20090506
  Serious: Yes (Hospitalization)
  Sender: FDA-Public Use
  Company Number: NL-PFIZER INC-2008099263

PATIENT

DRUGS (6)
  1. SOMAVERT [Suspect]
     Indication: ACROMEGALY
     Dosage: UNK
     Route: 058
     Dates: start: 20051101
  2. SOMAVERT [Suspect]
     Dosage: 30 MG, WEEKLY
     Route: 058
     Dates: start: 20060101
  3. SOMAVERT [Suspect]
     Route: 058
     Dates: end: 20060801
  4. SANDOSTATIN [Concomitant]
     Dates: start: 20050901, end: 20070401
  5. MOVICOLON [Concomitant]
  6. FERROUS FUMARATE [Concomitant]

REACTIONS (7)
  - BLOOD PRESSURE INCREASED [None]
  - COORDINATION ABNORMAL [None]
  - EMOTIONAL DISTRESS [None]
  - HUNGER [None]
  - HYPOGLYCAEMIA [None]
  - PANIC REACTION [None]
  - TREMOR [None]
